FAERS Safety Report 4589417-2 (Version None)
Quarter: 2005Q1

REPORT INFORMATION
  Report Type: 
  Country: None (occurrence: None)
  Receive Date: 20050223
  Receipt Date: 20050210
  Transmission Date: 20050727
  Serious: Yes (Death, Hospitalization)
  Sender: FDA-Public Use
  Company Number: 200510573FR

PATIENT
  Age: 61 Year
  Sex: Male

DRUGS (8)
  1. LASILIX RETARD [Suspect]
     Route: 048
  2. PRAVASTATIN [Suspect]
     Indication: LIPID METABOLISM DISORDER
     Route: 048
     Dates: end: 20041106
  3. ALDACTONE [Suspect]
     Route: 048
  4. BRISTOPEN [Suspect]
     Route: 048
     Dates: start: 20041223, end: 20041230
  5. ORBENIN CAP [Suspect]
     Route: 048
     Dates: start: 20041117, end: 20041223
  6. KEPPRA [Suspect]
     Dosage: DOSE UNIT: UNITS
     Route: 048
     Dates: start: 20040221
  7. DUPHALAC [Concomitant]
  8. NEXIUM [Concomitant]
     Dates: start: 20041221

REACTIONS (6)
  - HEPATIC CIRRHOSIS [None]
  - HEPATIC ENZYME INCREASED [None]
  - HEPATIC FAILURE [None]
  - HYPERBILIRUBINAEMIA [None]
  - HYPERSPLENISM [None]
  - PORTAL HYPERTENSION [None]
